FAERS Safety Report 4444653-0 (Version None)
Quarter: 2004Q3

REPORT INFORMATION
  Report Type: 
  Country: None (occurrence: None)
  Receive Date: 20040903
  Receipt Date: 20040827
  Transmission Date: 20050211
  Serious: Yes (Hospitalization)
  Sender: FDA-Public Use
  Company Number: 2004-08-1568

PATIENT
  Age: 51 Year
  Sex: Female

DRUGS (1)
  1. TEMODAL [Suspect]
     Indication: GLIOBLASTOMA MULTIFORME
     Dosage: 320 MG X5D QM ORAL
     Route: 048
     Dates: start: 20031101, end: 20040101

REACTIONS (1)
  - BRAIN OEDEMA [None]
